FAERS Safety Report 13856150 (Version 1)
Quarter: 2017Q3

REPORT INFORMATION
  Report Type: Spontaneous
  Country: GB (occurrence: GB)
  Receive Date: 20170810
  Receipt Date: 20170810
  Transmission Date: 20171127
  Serious: Yes (Other)
  Sender: FDA-Public Use
  Company Number: GB-MYLANLABS-2017M1047995

PATIENT

DRUGS (2)
  1. OMEPRAZOLE SODIUM [Concomitant]
     Active Substance: OMEPRAZOLE SODIUM
     Dosage: UNK
  2. ATORVASTATIN [Suspect]
     Active Substance: ATORVASTATIN
     Indication: HYPERCHOLESTEROLAEMIA
     Route: 048
     Dates: start: 20170707, end: 20170719

REACTIONS (2)
  - Erythema [Recovering/Resolving]
  - Angioedema [Recovering/Resolving]

NARRATIVE: CASE EVENT DATE: 20170717
